FAERS Safety Report 4962825-3 (Version None)
Quarter: 2006Q1

REPORT INFORMATION
  Report Type: 
  Country: None (occurrence: None)
  Receive Date: 20060331
  Receipt Date: 20060316
  Transmission Date: 20060701
  Serious: Yes (Life-Threatening, Hospitalization)
  Sender: FDA-Public Use
  Company Number: 2006EU000443

PATIENT
  Sex: Female
  Weight: 93 kg

DRUGS (1)
  1. VESIKUR(SOLIFENACIN) TABLET, 5 MG [Suspect]
     Indication: URINARY INCONTINENCE
     Dosage: 5 MG UID/QD ORAL
     Route: 048

REACTIONS (15)
  - ATRIOVENTRICULAR BLOCK COMPLETE [None]
  - ATRIOVENTRICULAR BLOCK SECOND DEGREE [None]
  - BRADYCARDIA [None]
  - CARDIAC FAILURE [None]
  - DIABETES MELLITUS [None]
  - DISORIENTATION [None]
  - DRUG INTOLERANCE [None]
  - HYPERTENSION [None]
  - INFARCTION [None]
  - LONG QT SYNDROME [None]
  - POLYNEUROPATHY [None]
  - POST PROCEDURAL HAEMATOMA [None]
  - RESUSCITATION [None]
  - SICK SINUS SYNDROME [None]
  - TORSADE DE POINTES [None]
